FAERS Safety Report 13004244 (Version 1)
Quarter: 2016Q4

REPORT INFORMATION
  Report Type: Spontaneous
  Country: US (occurrence: US)
  Receive Date: 20161206
  Receipt Date: 20161206
  Transmission Date: 20170207
  Serious: No
  Sender: FDA-Public Use
  Company Number: US-WELLSTAT THERAPEUTICS CORPORATION-1060497

PATIENT
  Age: 14 Month
  Sex: Female

DRUGS (1)
  1. XURIDEN [Suspect]
     Active Substance: URIDINE TRIACETATE
     Indication: OROTICACIDURIA
     Route: 048
     Dates: start: 20160628

REACTIONS (4)
  - Infection [None]
  - Pyrexia [None]
  - Cellulitis [None]
  - Neutropenia [None]
